FAERS Safety Report 17818085 (Version 1)
Quarter: 2020Q2

REPORT INFORMATION
  Report Type: Spontaneous
  Country: NO (occurrence: NO)
  Receive Date: 20200522
  Receipt Date: 20200522
  Transmission Date: 20200714
  Serious: Yes (Disabling)
  Sender: FDA-Public Use
  Company Number: NO-MYLANLABS-2020M1050173

PATIENT
  Age: 73 Year
  Sex: Female

DRUGS (11)
  1. PREDNISOLON                        /00016201/ [Interacting]
     Active Substance: PREDNISOLONE
     Dosage: 7.5 MILLIGRAM, QOD
  2. SOMAC [Concomitant]
     Active Substance: PANTOPRAZOLE SODIUM
     Indication: PROPHYLAXIS
     Dosage: INDICATION: PREVENT ULCER FROM METHOTREXATE TREATEMENT.
     Dates: start: 2016
  3. PREDNISOLON                        /00016201/ [Interacting]
     Active Substance: PREDNISOLONE
     Dosage: 5 MILLIGRAM, QOD
  4. FOLSYRE NAF [Concomitant]
     Active Substance: FOLIC ACID
     Indication: PROPHYLAXIS
     Dosage: INDICATION: TO PREVENT ADVERSE DRUG EFFECTS FROM METHOTREXATE
     Dates: start: 2017
  5. IMOVANE [Concomitant]
     Active Substance: ZOPICLONE
     Indication: SLEEP DISORDER
     Dosage: 7.5 MILLIGRAM, PRN
  6. LEDERSPAN [Suspect]
     Active Substance: TRIAMCINOLONE HEXACETONIDE
     Indication: MUSCULOSKELETAL PAIN
     Dosage: AT THE DEPART. OF RHEUMATOLOGI SHE RECEIVED 1 ML LEDERSPAN INTRA-ARTICULAR/SUBDELTOID BURSA.
     Route: 014
     Dates: start: 20200210, end: 20200210
  7. PARACET                            /00020001/ [Concomitant]
     Active Substance: ACETAMINOPHEN
     Indication: PAIN
     Dosage: 1 GRAM, PRN
  8. CALCIGRAN FORTE [Concomitant]
     Active Substance: CALCIUM CARBONATE\CHOLECALCIFEROL
     Dosage: 1000/800
     Route: 048
     Dates: start: 2016
  9. PREDNISOLON                        /00016201/ [Interacting]
     Active Substance: PREDNISOLONE
     Indication: POLYMYALGIA RHEUMATICA
     Dosage: 15 MILLIGRAM, QD
     Route: 048
     Dates: start: 201610, end: 2017
  10. EVIANA [Concomitant]
     Active Substance: ESTRADIOL HEMIHYDRATE\NORETHINDRONE ACETATE
  11. METHOTREXATE TEVA                  /00113801/ [Concomitant]
     Active Substance: METHOTREXATE
     Indication: POLYMYALGIA RHEUMATICA
     Dosage: 20 MILLIGRAM, QW
     Dates: start: 2017

REACTIONS (2)
  - Drug interaction [Unknown]
  - Osteonecrosis [Not Recovered/Not Resolved]

NARRATIVE: CASE EVENT DATE: 20200504
